FAERS Safety Report 7162103-0 (Version None)
Quarter: 2010Q4

REPORT INFORMATION
  Report Type: 
  Country: None (occurrence: None)
  Receive Date: 20101215
  Receipt Date: 20090810
  Transmission Date: 20110411
  Serious: Yes (Other)
  Sender: FDA-Public Use
  Company Number: GB-PFIZER INC-2009252205

PATIENT
  Age: 51 Year

DRUGS (3)
  1. LYRICA [Suspect]
     Indication: NEURALGIA
     Dosage: 225 MG, 2X/DAY
  2. LYRICA [Suspect]
     Dosage: 300 MG, UNK
  3. LYRICA [Suspect]
     Dosage: 150 MG, UNK
     Dates: end: 20090101

REACTIONS (7)
  - DIARRHOEA [None]
  - FATIGUE [None]
  - INFLUENZA LIKE ILLNESS [None]
  - INSOMNIA [None]
  - NAUSEA [None]
  - NERVOUSNESS [None]
  - SPINAL FUSION SURGERY [None]
